FAERS Safety Report 5736802-9 (Version None)
Quarter: 2008Q2

REPORT INFORMATION
  Report Type: 
  Country: None (occurrence: None)
  Receive Date: 20080509
  Receipt Date: 20080501
  Transmission Date: 20081010
  Serious: Yes (Hospitalization)
  Sender: FDA-Public Use
  Company Number: CLOF-1000150

PATIENT
  Age: 60 Year
  Sex: Female
  Weight: 86.6 kg

DRUGS (11)
  1. CLOFARABINE (CLOFARABINE) SOLUTION FOR INFUSION [Suspect]
     Indication: MYELODYSPLASTIC SYNDROME
     Dosage: 54 MG, QDX5, INTRAVENOUS
     Route: 042
     Dates: start: 20080226, end: 20080301
  2. ACYCLOVIR [Concomitant]
  3. ALLOPURINOL [Concomitant]
  4. CIPRO [Concomitant]
  5. SENNA (SENNA ALEXANDRINA) [Concomitant]
  6. PROVERA [Concomitant]
  7. ZOFRAN [Concomitant]
  8. SIROLIMUS (SIROLIMUS) [Concomitant]
  9. BACTRIM [Concomitant]
  10. TYLENOL (PARACETAMOL, PSEUDOEPHEDRINE HYDROCHLORIDE) [Concomitant]
  11. DIPHENHYDRAMINE (DIPHENHYDRAMINE, SODIUM CITRATE) [Concomitant]

REACTIONS (15)
  - BLOOD CREATININE INCREASED [None]
  - BONE MARROW TRANSPLANT REJECTION [None]
  - DECREASED APPETITE [None]
  - DIARRHOEA [None]
  - DRY MOUTH [None]
  - DYSPNOEA EXERTIONAL [None]
  - FATIGUE [None]
  - HYPERGLYCAEMIA [None]
  - HYPERMAGNESAEMIA [None]
  - HYPOKALAEMIA [None]
  - INCREASED UPPER AIRWAY SECRETION [None]
  - REFRACTORINESS TO PLATELET TRANSFUSION [None]
  - STOMATITIS [None]
  - VOMITING [None]
  - VULVOVAGINAL PRURITUS [None]
